FAERS Safety Report 15118965 (Version 1)
Quarter: 2018Q3

REPORT INFORMATION
  Report Type: Report from Study
  Country: DE (occurrence: DE)
  Receive Date: 20180709
  Receipt Date: 20180709
  Transmission Date: 20181010
  Serious: Yes (Hospitalization, Other)
  Sender: FDA-Public Use
  Company Number: DE-TEVA-2018-DE-922685

PATIENT
  Age: 75 Year
  Sex: Male
  Weight: 84 kg

DRUGS (8)
  1. MIDOSTAURIN [Suspect]
     Active Substance: MIDOSTAURIN
     Dosage: 200 MILLIGRAM DAILY; 200 MG, DAILY
     Route: 048
     Dates: start: 20140102, end: 20150426
  2. ZOLEDRONATE [Suspect]
     Active Substance: ZOLEDRONIC ACID
     Indication: PRODUCT USED FOR UNKNOWN INDICATION
     Dosage: UNK
     Route: 065
  3. DICLOFENAC [Concomitant]
     Active Substance: DICLOFENAC
     Indication: ARTHRALGIA
     Dosage: 75 MG, 3 TO 4 TIMES/WEEK
     Route: 065
     Dates: start: 201408
  4. METAMIZOLE [Concomitant]
     Active Substance: METAMIZOLE
     Indication: ARTHRALGIA
     Dosage: 500 MILLIGRAM DAILY; 500 MG, QID
     Route: 065
     Dates: start: 201408
  5. FUROSEMIDE. [Concomitant]
     Active Substance: FUROSEMIDE
     Indication: PRODUCT USED FOR UNKNOWN INDICATION
     Dosage: UNK
     Route: 065
  6. MIDOSTAURIN [Suspect]
     Active Substance: MIDOSTAURIN
     Indication: SYSTEMIC MASTOCYTOSIS
     Dosage: 200 MILLIGRAM DAILY; 200 MG, DAILY
     Route: 048
     Dates: start: 20150502, end: 201710
  7. TAMSULOSIN [Concomitant]
     Active Substance: TAMSULOSIN
     Indication: PRODUCT USED FOR UNKNOWN INDICATION
     Dosage: .4 MILLIGRAM DAILY; 0.4 MG, QD
     Route: 065
  8. DIGITOXIN [Concomitant]
     Active Substance: DIGITOXIN
     Indication: CORONARY ARTERY DISEASE
     Dosage: .1 MILLIGRAM DAILY; 0.1 MG, QD
     Route: 065
     Dates: start: 20130125

REACTIONS (4)
  - Osteonecrosis [Recovered/Resolved]
  - Gout [Recovered/Resolved]
  - Bowen^s disease [Recovered/Resolved]
  - Osteonecrosis of jaw [Recovered/Resolved with Sequelae]

NARRATIVE: CASE EVENT DATE: 20140212
